FAERS Safety Report 6652346-4 (Version None)
Quarter: 2010Q1

REPORT INFORMATION
  Report Type: 
  Country: None (occurrence: None)
  Receive Date: 20100323
  Receipt Date: 20100311
  Transmission Date: 20100710
  Serious: Yes (Other)
  Sender: FDA-Public Use
  Company Number: 2010SP000307

PATIENT
  Age: 44 Year
  Sex: Female
  Weight: 115.2 kg

DRUGS (5)
  1. ALVESCO [Suspect]
     Indication: ASTHMA
     Dosage: ;BID; INHALATION
     Route: 055
     Dates: start: 20091229, end: 20100107
  2. OMNARIS [Suspect]
     Indication: RHINITIS ALLERGIC
     Dosage: 200 UG; QD; NASAL
     Route: 045
     Dates: start: 20091229, end: 20100107
  3. LEVOTHYROXINE SODIUM [Concomitant]
  4. FEXOFENADINE [Concomitant]
  5. PROAIR HFA [Concomitant]

REACTIONS (1)
  - STEVENS-JOHNSON SYNDROME [None]
